FAERS Safety Report 18889232 (Version 1)
Quarter: 2021Q1

REPORT INFORMATION
  Report Type: Report from Study
  Country: None (occurrence: LU)
  Receive Date: 20210212
  Receipt Date: 20210212
  Transmission Date: 20210420
  Serious: Yes (Death, Hospitalization)
  Sender: FDA-Public Use
  Company Number: LU-ABBVIE-21K-098-3767276-00

PATIENT
  Age: 74 Year
  Sex: Male
  Weight: 81.9 kg

DRUGS (4)
  1. DUODOPA [Suspect]
     Active Substance: CARBIDOPA\LEVODOPA
     Dosage: MD=5.0ML, CD=3.5ML/HR DURING 16HRS, ED=2.5ML
     Route: 050
     Dates: start: 20200915, end: 20201030
  2. PROLOPA HBS [Concomitant]
     Active Substance: BENSERAZIDE\LEVODOPA
     Indication: PARKINSON^S DISEASE
     Dosage: FORM STRENGTH: 100MG/25MG?PROLOPA 125 HBS
     Route: 048
  3. DUODOPA [Suspect]
     Active Substance: CARBIDOPA\LEVODOPA
     Indication: PARKINSON^S DISEASE
     Dosage: UNKNOWN DOSAGES
     Route: 050
     Dates: start: 20190128, end: 20200915
  4. DUODOPA [Suspect]
     Active Substance: CARBIDOPA\LEVODOPA
     Dosage: MD=5.0ML, CD=3.5ML/HR DURING 16HRS, ED=2.0ML
     Route: 050
     Dates: start: 20201010

REACTIONS (1)
  - COVID-19 [Fatal]

NARRATIVE: CASE EVENT DATE: 202102
